FAERS Safety Report 16259938 (Version 3)
Quarter: 2019Q3

REPORT INFORMATION
  Report Type: Spontaneous
  Country: DE (occurrence: DE)
  Receive Date: 20190501
  Receipt Date: 20190903
  Transmission Date: 20191004
  Serious: Yes (Hospitalization, Disabling, Other)
  Sender: FDA-Public Use
  Company Number: DE-MYLANLABS-2019M1040812

PATIENT
  Sex: Male

DRUGS (17)
  1. VALSARTAN MYLAN [Suspect]
     Active Substance: VALSARTAN
     Indication: HYPERTENSION
     Dosage: 160 MILLIGRAM
     Route: 065
  2. NEBIVOLOL. [Concomitant]
     Active Substance: NEBIVOLOL
     Dosage: 5 MG, QD (1-0-0)
     Route: 065
     Dates: start: 2016, end: 2016
  3. NOVALGIN (METAMIZOLE SODIUM) [Concomitant]
     Active Substance: METAMIZOLE SODIUM
     Indication: PRODUCT USED FOR UNKNOWN INDICATION
     Dosage: 40 GTT DROPS (ON DEMAND)
     Route: 065
  4. VERGENTAN [Concomitant]
     Active Substance: ALIZAPRIDE HYDROCHLORIDE
     Indication: PRODUCT USED FOR UNKNOWN INDICATION
     Dosage: 3 DOSAGE FORM, TID (UNK UNK, TID (1-1-1))
     Route: 065
  5. VALSARTAN. [Suspect]
     Active Substance: VALSARTAN
     Indication: HYPERTENSION
     Dosage: UNK
     Route: 065
     Dates: start: 2012
  6. NEBIVOLOL. [Concomitant]
     Active Substance: NEBIVOLOL
     Indication: PRODUCT USED FOR UNKNOWN INDICATION
     Dosage: 2.5 MG, QD (1-0-0)
     Route: 065
  7. VALSARTAN. [Suspect]
     Active Substance: VALSARTAN
     Indication: HYPERTENSION
     Dosage: 160 MG, UNK
     Route: 065
  8. NOVAMINSULFON [Concomitant]
     Active Substance: METAMIZOLE
     Indication: PRODUCT USED FOR UNKNOWN INDICATION
     Dosage: 30 GTT, QD (1-1-1-1)
     Route: 065
  9. VALSARTAN. [Suspect]
     Active Substance: VALSARTAN
     Indication: HYPERTENSION
     Dosage: 160 MG, UNK
     Route: 065
     Dates: start: 2012
  10. RANITIDIN [Concomitant]
     Active Substance: RANITIDINE HYDROCHLORIDE
     Indication: PRODUCT USED FOR UNKNOWN INDICATION
     Dosage: 300 MG, QD (1-0-0)
     Route: 065
  11. MCP [Concomitant]
     Active Substance: METOCLOPRAMIDE HYDROCHLORIDE
     Indication: PRODUCT USED FOR UNKNOWN INDICATION
     Dosage: 3 DOSAGE FORM, TID (UNK, UNK, 1-1-1)
     Route: 065
  12. VALSARTAN. [Suspect]
     Active Substance: VALSARTAN
     Indication: HYPERTENSION
     Dosage: 160 MG, UNK
     Route: 065
  13. REMESTAN [Concomitant]
     Active Substance: TEMAZEPAM
     Indication: PRODUCT USED FOR UNKNOWN INDICATION
     Dosage: UNK UNK, QD (0-0-0-1)
     Route: 065
  14. BEPANTHEN                          /00223901/ [Concomitant]
     Indication: PRODUCT USED FOR UNKNOWN INDICATION
     Dosage: UNK
     Route: 065
  15. MUCOFALK                           /01328803/ [Concomitant]
     Active Substance: HERBALS\PLANTAGO OVATA LEAF
     Indication: CONSTIPATION PROPHYLAXIS
     Dosage: UNK
     Route: 065
     Dates: start: 2016
  16. VALSARTAN. [Suspect]
     Active Substance: VALSARTAN
     Dosage: 160 MILLIGRAM, QD
  17. IBUPROFEN. [Concomitant]
     Active Substance: IBUPROFEN
     Indication: POSTOPERATIVE CARE
     Dosage: 600 MG, PRN
     Route: 065

REACTIONS (31)
  - Mental disorder [Not Recovered/Not Resolved]
  - Anal cancer stage 0 [Unknown]
  - Lymphocyte count decreased [Unknown]
  - C-reactive protein increased [Unknown]
  - Impaired quality of life [Unknown]
  - Anal pruritus [Unknown]
  - Haematochezia [Unknown]
  - Radiation skin injury [Unknown]
  - Oropharyngeal pain [Unknown]
  - Anal inflammation [Unknown]
  - Haemorrhoids [Unknown]
  - Anorectal discomfort [Unknown]
  - Proctalgia [Unknown]
  - Glaucoma [Unknown]
  - Squamous cell carcinoma [Unknown]
  - Pain [Unknown]
  - Anal squamous cell carcinoma [Unknown]
  - Pyrexia [Unknown]
  - Dermatitis [Unknown]
  - Fear of death [Not Recovered/Not Resolved]
  - Anal ulcer [Unknown]
  - Gastrointestinal motility disorder [Unknown]
  - Anal infection [Unknown]
  - Monocyte count increased [Unknown]
  - Inflammation [Unknown]
  - Dyschezia [Unknown]
  - Abdominal pain upper [Unknown]
  - Stevens-Johnson syndrome [Unknown]
  - Anal cancer [Unknown]
  - Neutrophil count increased [Unknown]
  - Skin maceration [Unknown]

NARRATIVE: CASE EVENT DATE: 2014
